FAERS Safety Report 24077201 (Version 2)
Quarter: 2024Q3

REPORT INFORMATION
  Report Type: Spontaneous
  Country: US (occurrence: None)
  Receive Date: 20240711
  Receipt Date: 20240903
  Transmission Date: 20241017
  Serious: No
  Sender: ASTRAZENECA
  Company Number: 2024A148765

PATIENT
  Sex: Female

DRUGS (1)
  1. SYMBICORT [Suspect]
     Active Substance: BUDESONIDE\FORMOTEROL FUMARATE DIHYDRATE
     Dosage: UNKNOWN UNKNOWN
     Route: 055

REACTIONS (7)
  - Asthma [Unknown]
  - Device delivery system issue [Unknown]
  - Device use issue [Unknown]
  - Drug dose omission by device [Unknown]
  - Product use issue [Unknown]
  - Extra dose administered [Unknown]
  - Wrong technique in product usage process [Unknown]
